FAERS Safety Report 8946946 (Version 1)
Quarter: 2012Q4

REPORT INFORMATION
  Report Type: 
  Country: US (occurrence: US)
  Receive Date: 20121205
  Receipt Date: 20121205
  Transmission Date: 20130627
  Serious: Yes (Other)
  Sender: FDA-Public Use
  Company Number: US-PFIZER INC-2012305250

PATIENT

DRUGS (1)
  1. LYRICA [Suspect]
     Dosage: UNK

REACTIONS (5)
  - Road traffic accident [Unknown]
  - Pain in extremity [Unknown]
  - Pain [Unknown]
  - Asthenia [Unknown]
  - Activities of daily living impaired [Unknown]
